FAERS Safety Report 18683108 (Version 1)
Quarter: 2020Q4

REPORT INFORMATION
  Report Type: Spontaneous
  Country: US (occurrence: US)
  Receive Date: 20201230
  Receipt Date: 20201230
  Transmission Date: 20210114
  Serious: No
  Sender: FDA-Public Use
  Company Number: US-GLAXOSMITHKLINE-US2020254625

PATIENT
  Sex: Female

DRUGS (1)
  1. ABREVA [Suspect]
     Active Substance: DOCOSANOL
     Indication: PRODUCT USED FOR UNKNOWN INDICATION
     Dosage: UNK
     Dates: start: 20201219

REACTIONS (5)
  - Condition aggravated [Unknown]
  - Oral discomfort [Unknown]
  - Oral mucosal blistering [Unknown]
  - Drug ineffective [Recovered/Resolved]
  - Lip scab [Unknown]
